FAERS Safety Report 7593775-4 (Version None)
Quarter: 2011Q3

REPORT INFORMATION
  Report Type: 
  Country: None (occurrence: None)
  Receive Date: 20110706
  Receipt Date: 20110623
  Transmission Date: 20111222
  Serious: Yes (Other)
  Sender: FDA-Public Use
  Company Number: PHHY2011US06970

PATIENT
  Sex: Female

DRUGS (11)
  1. ROPINIROLE [Concomitant]
     Dosage: UNK
     Dates: start: 20080516, end: 20090108
  2. CONCERTA [Concomitant]
     Dosage: 2 TAB BY MOUTH EVERY MORNING
  3. HYOSCYAMINE SULFATE [Concomitant]
     Dosage: UNK
     Route: 060
     Dates: end: 20090601
  4. TOPAMAX [Concomitant]
     Dosage: 100 MG
     Dates: start: 20080613, end: 20090108
  5. RECLAST [Suspect]
     Indication: OSTEOPOROSIS
     Dosage: 5 MG/100 ML
     Route: 042
     Dates: start: 20110117, end: 20110124
  6. NASONEX [Concomitant]
     Dosage: UNK
     Dates: start: 20090220, end: 20091120
  7. RITALIN [Concomitant]
     Dosage: 20 MG
  8. TRAMADOL HCL [Concomitant]
     Dosage: 50 MG
     Dates: start: 20090721, end: 20090721
  9. CYMBALTA [Concomitant]
     Dosage: UNK
     Dates: start: 20090408, end: 20090408
  10. LORATADINE [Concomitant]
     Dosage: UNK
     Dates: start: 20090721, end: 20090721
  11. DELSYM [Concomitant]
     Dosage: 30 MG/5 ML
     Dates: start: 20090219, end: 20090505

REACTIONS (12)
  - ABDOMINAL MASS [None]
  - DYSPNOEA [None]
  - FEELING COLD [None]
  - EYE PAIN [None]
  - CHEST PAIN [None]
  - DELUSION [None]
  - PAIN OF SKIN [None]
  - NAUSEA [None]
  - PYREXIA [None]
  - ARTHRALGIA [None]
  - PAIN [None]
  - PAIN IN EXTREMITY [None]
